FAERS Safety Report 4545853-1 (Version None)
Quarter: 2005Q1

REPORT INFORMATION
  Report Type: 
  Country: None (occurrence: None)
  Receive Date: 20050103
  Receipt Date: 20041221
  Transmission Date: 20050727
  Serious: Yes (Other)
  Sender: FDA-Public Use
  Company Number: 2004117633

PATIENT
  Age: 64 Year
  Sex: Female
  Weight: 81.6475 kg

DRUGS (2)
  1. CELEBREX [Suspect]
     Indication: ARTHRALGIA
     Dosage: 200 MG (200 MG , 1 IN 1 D), ORAL
     Route: 048
     Dates: start: 20040101
  2. TEMAZEPAM [Concomitant]

REACTIONS (5)
  - ABASIA [None]
  - ASTHMA [None]
  - BRONCHITIS [None]
  - DRUG HYPERSENSITIVITY [None]
  - SWELLING [None]
